FAERS Safety Report 8344181-6 (Version None)
Quarter: 2012Q2

REPORT INFORMATION
  Report Type: 
  Country: None (occurrence: None)
  Receive Date: 20120508
  Receipt Date: 20110223
  Transmission Date: 20120825
  Serious: No
  Sender: FDA-Public Use
  Company Number: US-TEVA-2011000882

PATIENT
  Sex: Male
  Weight: 78.542 kg

DRUGS (7)
  1. ZANTAC [Concomitant]
     Route: 048
     Dates: start: 20110125
  2. TREANDA [Suspect]
     Indication: CHRONIC LYMPHOCYTIC LEUKAEMIA
     Route: 042
     Dates: start: 20110125
  3. DEXAMETHASONE [Concomitant]
     Dates: start: 20110125
  4. BENADRYL [Concomitant]
     Dates: start: 20110125
  5. RITUXAN [Concomitant]
     Indication: CHRONIC LYMPHOCYTIC LEUKAEMIA
     Route: 002
     Dates: start: 20110125
  6. ALOXI [Concomitant]
     Route: 042
     Dates: start: 20110126
  7. KYTRIL [Concomitant]
     Route: 042
     Dates: start: 20110125

REACTIONS (3)
  - EXTRAVASATION [None]
  - INFUSION SITE ERYTHEMA [None]
  - INFUSION SITE SWELLING [None]
